FAERS Safety Report 16713324 (Version 4)
Quarter: 2019Q4

REPORT INFORMATION
  Report Type: Spontaneous
  Country: ZA (occurrence: ZA)
  Receive Date: 20190818
  Receipt Date: 20191025
  Transmission Date: 20200122
  Serious: Yes (Hospitalization, Other)
  Sender: FDA-Public Use
  Company Number: ZA-AMGEN-ZAFSP2019112365

PATIENT
  Age: 58 Year
  Sex: Female

DRUGS (3)
  1. ENBREL [Suspect]
     Active Substance: ETANERCEPT
     Dosage: 50 MG, WEEKLY
     Route: 058
     Dates: start: 20190329
  2. ENBREL [Suspect]
     Active Substance: ETANERCEPT
     Indication: RHEUMATOID ARTHRITIS
     Dosage: 50 MG, WEEKLY
     Route: 058
     Dates: start: 20180111
  3. ENBREL [Suspect]
     Active Substance: ETANERCEPT
     Dosage: UNK
     Route: 065
     Dates: start: 20190712

REACTIONS (15)
  - Blood glucose increased [Recovered/Resolved]
  - Genital lesion [Unknown]
  - Respiratory tract infection [Unknown]
  - Chest pain [Recovered/Resolved]
  - Lower respiratory tract infection [Unknown]
  - Bronchitis [Recovered/Resolved]
  - Pruritus [Recovered/Resolved]
  - Condition aggravated [Unknown]
  - Chest pain [Unknown]
  - Pain [Unknown]
  - Infection [Unknown]
  - Chest discomfort [Unknown]
  - Injection site pain [Unknown]
  - Bronchitis [Recovered/Resolved]
  - Bursitis [Recovered/Resolved]

NARRATIVE: CASE EVENT DATE: 2018
